FAERS Safety Report 4702992-X (Version None)
Quarter: 2005Q2

REPORT INFORMATION
  Report Type: 
  Country: None (occurrence: None)
  Receive Date: 20050629
  Receipt Date: 20050620
  Transmission Date: 20051028
  Serious: Yes (Hospitalization)
  Sender: FDA-Public Use
  Company Number: PHRM2005FR01899

PATIENT
  Age: 69 Year
  Sex: Male

DRUGS (6)
  1. TEGRETOL [Suspect]
     Indication: PSYCHOTIC DISORDER
     Dosage: 800 MG/DAY
     Route: 048
     Dates: start: 20050415
  2. LEVOTHYROX [Concomitant]
     Dosage: 50 UG/DAY
     Route: 048
  3. KARDEGIC [Concomitant]
     Dosage: 1 DF/DAY
     Route: 048
  4. SEROPRAM [Concomitant]
     Dosage: 20 MG/DAY
     Route: 048
  5. LEPONEX [Suspect]
     Indication: PSYCHOTIC DISORDER
     Dosage: 75 MG/DAY
     Route: 048
     Dates: start: 20050410
  6. EQUANIL [Concomitant]
     Dosage: 2 TABS/DAY
     Route: 048

REACTIONS (5)
  - ATRIOVENTRICULAR BLOCK COMPLETE [None]
  - CARDIAC PACEMAKER INSERTION [None]
  - DIZZINESS [None]
  - HEART RATE DECREASED [None]
  - MALAISE [None]
